FAERS Safety Report 9630176 (Version 3)
Quarter: 2013Q4

REPORT INFORMATION
  Report Type: Spontaneous
  Country: FR (occurrence: FR)
  Receive Date: 20131017
  Receipt Date: 20131223
  Transmission Date: 20140711
  Serious: Yes (Hospitalization)
  Sender: FDA-Public Use
  Company Number: FR-WATSON-2013-14658

PATIENT
  Age: 58 Year
  Sex: Male

DRUGS (7)
  1. PRAVASTATIN [Suspect]
     Indication: PRODUCT USED FOR UNKNOWN INDICATION
     Dosage: 20 MG, DAILY
     Route: 048
     Dates: start: 2011, end: 2013
  2. FUROSEMIDE (UNKNOWN) [Suspect]
     Indication: RENAL FAILURE
     Dosage: UNKNOWN
     Route: 048
     Dates: start: 2011, end: 2013
  3. AMLODIPINE PFIZER [Suspect]
     Indication: PRODUCT USED FOR UNKNOWN INDICATION
     Dosage: 5 OR 10 MG/DAY IN THE MORNING
     Route: 048
     Dates: start: 2011, end: 2013
  4. IRBESARTAN [Suspect]
     Indication: PRODUCT USED FOR UNKNOWN INDICATION
     Dosage: UNK
     Route: 048
     Dates: end: 201309
  5. BURINEX [Suspect]
     Indication: RENAL FAILURE
     Dosage: UNKNOWN
     Route: 048
  6. MESTINON [Concomitant]
     Indication: PRODUCT USED FOR UNKNOWN INDICATION
     Dosage: 3 TIMES PER DAY FOR INR BETWEEN 2-3
  7. COUMADIN                           /00014802/ [Concomitant]
     Indication: PRODUCT USED FOR UNKNOWN INDICATION
     Dosage: UNK

REACTIONS (2)
  - Pruritus [Recovering/Resolving]
  - Hypersensitivity vasculitis [Recovering/Resolving]
